FAERS Safety Report 9084475 (Version 1)
Quarter: 2013Q1

REPORT INFORMATION
  Report Type: Spontaneous
  Country: MX (occurrence: MX)
  Receive Date: 20130218
  Receipt Date: 20130218
  Transmission Date: 20140127
  Serious: Yes (Disabling)
  Sender: FDA-Public Use
  Company Number: PHHY2013MX015035

PATIENT
  Age: 62 Year
  Sex: Male

DRUGS (7)
  1. STALEVO [Suspect]
     Indication: PARKINSON^S DISEASE
     Dosage: 3 DF (37.5/150/200MG) DAILY
     Route: 048
     Dates: start: 201101
  2. RASAGILINE [Concomitant]
     Indication: PARKINSON^S DISEASE
     Dosage: 0.5 UKN, QD
     Dates: start: 201201
  3. AMANTADINE [Concomitant]
     Indication: PARKINSON^S DISEASE
     Dosage: 1 UKN, QD
     Dates: start: 201201
  4. BIPERIDENO [Concomitant]
     Dosage: 1 UKN, QD
     Dates: start: 201201
  5. SERTRALINE [Concomitant]
     Indication: DEPRESSION
     Dosage: 2 UKN, QD
  6. CLONAZEPAM [Concomitant]
     Indication: MUSCLE RELAXANT THERAPY
     Dosage: 1 UKN, QD
  7. CELEBREX [Concomitant]
     Indication: SPINAL PAIN
     Dosage: 1 UKN, QD
     Dates: start: 201211

REACTIONS (4)
  - Dysstasia [Not Recovered/Not Resolved]
  - Impaired self-care [Not Recovered/Not Resolved]
  - Asthenia [Not Recovered/Not Resolved]
  - Spinal pain [Unknown]
